FAERS Safety Report 13903747 (Version 3)
Quarter: 2018Q1

REPORT INFORMATION
  Report Type: Report from Study
  Country: US (occurrence: US)
  Receive Date: 20170824
  Receipt Date: 20180201
  Transmission Date: 20180508
  Serious: Yes (Hospitalization)
  Sender: FDA-Public Use
  Company Number: US-ACTELION-A-NJ2016-137797

PATIENT
  Age: 2 Year
  Sex: Female

DRUGS (8)
  1. ZANTAC [Concomitant]
     Active Substance: RANITIDINE HYDROCHLORIDE
  2. TRACLEER [Suspect]
     Active Substance: BOSENTAN
     Dosage: 62.5 MG, Q12HRS
     Route: 048
  3. HYDROCORTISONE. [Concomitant]
     Active Substance: HYDROCORTISONE
  4. TRIAMCINOLONE [Concomitant]
     Active Substance: TRIAMCINOLONE
  5. SILDENAFIL. [Concomitant]
     Active Substance: SILDENAFIL
  6. TRACLEER [Suspect]
     Active Substance: BOSENTAN
     Indication: PULMONARY ARTERIAL HYPERTENSION
     Dosage: 12.5 MG, BID
     Route: 048
     Dates: start: 20151215
  7. TRACLEER [Suspect]
     Active Substance: BOSENTAN
     Dosage: 31.25 MG, BID
     Route: 048
  8. REMODULIN [Concomitant]
     Active Substance: TREPROSTINIL

REACTIONS (16)
  - Injection site erythema [Not Recovered/Not Resolved]
  - Heart rate irregular [Recovering/Resolving]
  - Pruritus generalised [Recovering/Resolving]
  - Oxygen saturation decreased [Not Recovered/Not Resolved]
  - Incorrect drug administration rate [Recovering/Resolving]
  - Diarrhoea [Unknown]
  - Injection site swelling [Not Recovered/Not Resolved]
  - Generalised erythema [Unknown]
  - Vomiting [Unknown]
  - Nasopharyngitis [Recovering/Resolving]
  - Wheezing [Recovering/Resolving]
  - Injection site pain [Not Recovered/Not Resolved]
  - Pneumonia [Unknown]
  - Ear infection [Recovering/Resolving]
  - Abdominal pain upper [Recovering/Resolving]
  - Catheter site infection [Unknown]

NARRATIVE: CASE EVENT DATE: 20160510
